FAERS Safety Report 7624427-X (Version None)
Quarter: 2011Q3

REPORT INFORMATION
  Report Type: 
  Country: None (occurrence: None)
  Receive Date: 20110720
  Receipt Date: 20110712
  Transmission Date: 20111222
  Serious: Yes (Other)
  Sender: FDA-Public Use
  Company Number: US-JNJFOC-20110706563

PATIENT
  Age: 10 Year
  Sex: Male

DRUGS (2)
  1. SULFADIAZINE [Suspect]
     Indication: RHEUMATIC FEVER
  2. ASPIRIN [Suspect]
     Indication: RHEUMATIC FEVER
     Route: 065

REACTIONS (2)
  - HEPATITIS CHOLESTATIC [None]
  - STEVENS-JOHNSON SYNDROME [None]
